FAERS Safety Report 18779016 (Version 4)
Quarter: 2021Q3

REPORT INFORMATION
  Report Type: Spontaneous
  Country: US (occurrence: US)
  Receive Date: 20210124
  Receipt Date: 20210830
  Transmission Date: 20211014
  Serious: Yes (Hospitalization, Other)
  Sender: FDA-Public Use
  Company Number: US-DECIPHERA PHARMACEUTICALS LLC-2021US000034

PATIENT
  Age: 48 Year
  Sex: Male

DRUGS (4)
  1. QINLOCK [Suspect]
     Active Substance: RIPRETINIB
     Dosage: 100 DOSAGE FORM, QD
     Route: 048
  2. QINLOCK [Suspect]
     Active Substance: RIPRETINIB
     Dosage: 100 DOSAGE FORM, QD
     Route: 048
     Dates: end: 20210817
  3. QINLOCK [Suspect]
     Active Substance: RIPRETINIB
     Dosage: 2 DOSAGE FORM, QD
     Route: 048
  4. QINLOCK [Suspect]
     Active Substance: RIPRETINIB
     Indication: GASTROINTESTINAL STROMAL TUMOUR
     Dosage: 150 MILLIGRAM, QD
     Route: 048
     Dates: start: 20200619

REACTIONS (3)
  - Internal haemorrhage [Unknown]
  - Therapy change [Unknown]
  - Tumour excision [Unknown]

NARRATIVE: CASE EVENT DATE: 202104
